FAERS Safety Report 21406238 (Version 8)
Quarter: 2025Q1

REPORT INFORMATION
  Report Type: Spontaneous
  Country: US (occurrence: US)
  Receive Date: 20221004
  Receipt Date: 20250110
  Transmission Date: 20250408
  Serious: No
  Sender: PFIZER
  Company Number: US-PFIZER INC-PV202200074012

PATIENT
  Age: 78 Year
  Sex: Female

DRUGS (6)
  1. IBRANCE [Suspect]
     Active Substance: PALBOCICLIB
     Indication: Breast cancer metastatic
     Route: 048
     Dates: start: 20220829
  2. IBRANCE [Suspect]
     Active Substance: PALBOCICLIB
     Indication: Metastases to liver
  3. IBRANCE [Suspect]
     Active Substance: PALBOCICLIB
     Indication: Cholangiocarcinoma
  4. FASLODEX [Concomitant]
     Active Substance: FULVESTRANT
  5. XANAX [Concomitant]
     Active Substance: ALPRAZOLAM
     Indication: Anxiety
     Route: 048
     Dates: start: 20220812
  6. XALATAN [Concomitant]
     Active Substance: LATANOPROST
     Dosage: 2 DROP, 1X/DAY
     Route: 047
     Dates: start: 20230302

REACTIONS (4)
  - Illness [Unknown]
  - Confusional state [Unknown]
  - Nervousness [Unknown]
  - Memory impairment [Unknown]
